FAERS Safety Report 6217968-3 (Version None)
Quarter: 2009Q2

REPORT INFORMATION
  Report Type: 
  Country: None (occurrence: None)
  Receive Date: 20090608
  Receipt Date: 20090506
  Transmission Date: 20091009
  Serious: No
  Sender: FDA-Public Use
  Company Number: US-BAYER-200920245NA

PATIENT
  Age: 23 Year
  Sex: Female
  Weight: 92 kg

DRUGS (1)
  1. MIRENA [Suspect]
     Indication: CONTRACEPTION
     Dates: start: 20090211, end: 20090428

REACTIONS (2)
  - BIOPSY CERVIX [None]
  - INTRA-UTERINE CONTRACEPTIVE DEVICE EXPELLED [None]
